FAERS Safety Report 8890508 (Version 2)
Quarter: 2013Q2

REPORT INFORMATION
  Report Type: Report from Study
  Country: BR (occurrence: BR)
  Receive Date: 20121107
  Receipt Date: 20130520
  Transmission Date: 20140414
  Serious: Yes (Hospitalization, Other)
  Sender: FDA-Public Use
  Company Number: PHHY2012BR099836

PATIENT
  Sex: Female
  Weight: 71 kg

DRUGS (6)
  1. CALSAN [Suspect]
     Indication: BLOOD CALCIUM DECREASED
     Dosage: 3 DF, DAILY
     Dates: start: 201209
  2. CALSAN [Suspect]
     Dosage: 4 DF, DAILY
  3. TRILEPTAL [Suspect]
     Indication: CONVULSION
     Dosage: 2 DF, PER DAY
     Route: 048
  4. SIGMATRIOL [Concomitant]
     Indication: BLOOD CALCIUM DECREASED
     Dosage: 4 DF, DAILY
     Dates: start: 201209
  5. SIGMATRIOL [Concomitant]
     Dosage: 6 DF, DAILY
  6. PURAN T4 [Concomitant]
     Indication: THYROID DISORDER
     Dosage: 1 DF, QD
     Route: 048
     Dates: start: 201209

REACTIONS (7)
  - Malaise [Unknown]
  - Tremor [Recovered/Resolved]
  - Blood calcium decreased [Recovered/Resolved]
  - Dyspepsia [Recovered/Resolved]
  - Gastrooesophageal reflux disease [Recovered/Resolved]
  - Burning sensation [Recovered/Resolved]
  - Nausea [Recovered/Resolved]
